FAERS Safety Report 15075564 (Version 6)
Quarter: 2018Q4

REPORT INFORMATION
  Report Type: Spontaneous
  Country: JP (occurrence: JP)
  Receive Date: 20180627
  Receipt Date: 20181102
  Transmission Date: 20190204
  Serious: Yes (Hospitalization)
  Sender: FDA-Public Use
  Company Number: JP-OTSUKA-2018_017504

PATIENT
  Age: 63 Year
  Sex: Male

DRUGS (26)
  1. MUCOSTA TABLETS 100MG [Concomitant]
     Active Substance: REBAMIPIDE
     Indication: PRODUCT USED FOR UNKNOWN INDICATION
     Dosage: 1 DF, AS INSTRUCTED BY THE PHYSICIAN (PRN)
     Route: 065
     Dates: start: 20180606
  2. LIMAS [Concomitant]
     Active Substance: LITHIUM CARBONATE
     Indication: PRODUCT USED FOR UNKNOWN INDICATION
     Dosage: 4 DF, AFTER EVERY MEAL
     Route: 048
     Dates: start: 2005
  3. REXULTI [Suspect]
     Active Substance: BREXPIPRAZOLE
     Indication: MANIA
     Dosage: 1 MG, DAILY DOSE
     Route: 048
     Dates: start: 20180420, end: 20180426
  4. QUAZEPAM. [Concomitant]
     Active Substance: QUAZEPAM
     Indication: PRODUCT USED FOR UNKNOWN INDICATION
     Dosage: 2 DF, BEFORE BEDTIME
     Route: 048
  5. ALEGYSAL [Concomitant]
     Indication: PRODUCT USED FOR UNKNOWN INDICATION
     Dosage: 1 DF, AS INSTRUCTED BY THE PHYSICIAN
     Route: 065
     Dates: start: 20180516
  6. LOBU [Concomitant]
     Active Substance: LOBUCAVIR
     Indication: PRODUCT USED FOR UNKNOWN INDICATION
     Dosage: 1 DF, AS INSTRUCTED BY THE PHYSICIAN (PRN)
     Route: 065
     Dates: start: 20180606
  7. ARIPIPRAZOLE. [Concomitant]
     Active Substance: ARIPIPRAZOLE
     Indication: PRODUCT USED FOR UNKNOWN INDICATION
     Dosage: 12 MG, AFTER BREAKFAST AND DINNER
     Route: 048
     Dates: start: 20170405, end: 20180420
  8. DEPAKENE [Concomitant]
     Active Substance: VALPROIC ACID
     Indication: PRODUCT USED FOR UNKNOWN INDICATION
     Dosage: 6 DF (600MG), AFTER EVERY MEAL
     Route: 048
     Dates: start: 2005
  9. SULTOPRIDE HYDROCHLORIDE [Concomitant]
     Active Substance: SULTOPRIDE HYDROCHLORIDE
     Indication: PRODUCT USED FOR UNKNOWN INDICATION
     Dosage: 1 DF, AFTER DINNER
     Route: 048
     Dates: end: 20180617
  10. SILECE [Concomitant]
     Active Substance: FLUNITRAZEPAM
     Indication: PRODUCT USED FOR UNKNOWN INDICATION
     Dosage: 1 DF, AT THE TIME OF SLEEPLESSNESS (PRN)
     Route: 065
     Dates: start: 20180421
  11. GENTACIN [Concomitant]
     Active Substance: GENTAMICIN SULFATE
     Indication: PRODUCT USED FOR UNKNOWN INDICATION
     Dosage: 3 DF, AS INSTRUCTED BY THE PHYSICIAN
     Route: 065
     Dates: start: 20180522
  12. SENNOSIDE [Concomitant]
     Active Substance: SENNOSIDES
     Indication: PRODUCT USED FOR UNKNOWN INDICATION
     Dosage: 2 DF, BEFORE BEDTIME
     Route: 048
     Dates: start: 20180608
  13. REXULTI [Suspect]
     Active Substance: BREXPIPRAZOLE
     Dosage: 2 DF (2MG), AFTER DINNER (TEMPORARY BASIS)
     Route: 048
     Dates: start: 20180427, end: 20180605
  14. MINOCYCLINE HYDROCHLORIDE. [Concomitant]
     Active Substance: MINOCYCLINE HYDROCHLORIDE
     Indication: PRODUCT USED FOR UNKNOWN INDICATION
     Dosage: 4 DF, AFTER BREAKFAST AND DINNER (TEMPORARY BASIS)
     Route: 048
  15. NADIFLO [Concomitant]
     Indication: PRODUCT USED FOR UNKNOWN INDICATION
     Dosage: 2 DF, AS INSTRUCTED BY THE PHYSICIAN
     Route: 065
     Dates: start: 20180410
  16. PARKINES [Concomitant]
     Active Substance: TRIHEXYPHENIDYL HYDROCHLORIDE
     Indication: SALIVARY HYPERSECRETION
     Dosage: 1 DF, AFTER DINNER (TEMPORARY BASIS)
     Route: 048
     Dates: start: 20180502
  17. REXULTI [Suspect]
     Active Substance: BREXPIPRAZOLE
     Indication: SCHIZOPHRENIA
     Dosage: 1 DF (1MG), AFTER DINNER (TEMPORARY BASIS)
     Route: 048
     Dates: start: 20180606, end: 20180608
  18. LEVOTOMIN [Concomitant]
     Active Substance: LEVOMEPROMAZINE
     Indication: PRODUCT USED FOR UNKNOWN INDICATION
     Dosage: 1 DF, BEFORE BEDTIME
     Route: 048
  19. YOUPIS [Concomitant]
     Indication: PRODUCT USED FOR UNKNOWN INDICATION
     Dosage: 1 DF, AT THE TIME OF CONSTIPATION (PRN)
     Route: 065
     Dates: start: 20180404
  20. MINOCYCLINE HYDROCHLORIDE. [Concomitant]
     Active Substance: MINOCYCLINE HYDROCHLORIDE
     Dosage: 2 DF, AFTER BREAKFAST AND DINNER (TEMPORARY BASIS)
     Route: 048
  21. BIOFERMIN R [Concomitant]
     Active Substance: BACILLUS SUBTILIS\LACTOBACILLUS ACIDOPHILUS\STREPTOCOCCUS FAECAIS
     Indication: PRODUCT USED FOR UNKNOWN INDICATION
     Dosage: 2 DF, AFTER BREAKFAST AND DINNER (TEMPORARY BASIS)
     Route: 048
  22. SELTOUCH [Concomitant]
     Active Substance: FELBINAC
     Indication: PRODUCT USED FOR UNKNOWN INDICATION
     Dosage: 1 DF, AS INSTRUCTED BY THE PHYSICIAN
     Route: 065
     Dates: start: 20180425
  23. ARIPIPRAZOLE. [Concomitant]
     Active Substance: ARIPIPRAZOLE
     Dosage: 1 DF, AFTER BREAKFAST
     Route: 048
     Dates: start: 20180420
  24. OLANZAPINE. [Concomitant]
     Active Substance: OLANZAPINE
     Indication: PRODUCT USED FOR UNKNOWN INDICATION
     Dosage: 2 DF (20MG), AFTER DINNER/BEFORE BEDTIME
     Route: 048
     Dates: start: 2005
  25. BROTIZOLAM [Concomitant]
     Active Substance: BROTIZOLAM
     Indication: PRODUCT USED FOR UNKNOWN INDICATION
     Dosage: 1 DF, BEFORE BEDTIME
     Route: 048
  26. ALOSENN [Concomitant]
     Active Substance: SENNA LEAF
     Indication: PRODUCT USED FOR UNKNOWN INDICATION
     Dosage: 2 DF, BEFORE BEDTIME
     Route: 048

REACTIONS (5)
  - Salivary hypersecretion [Unknown]
  - Pneumonia [Not Recovered/Not Resolved]
  - Dizziness [Unknown]
  - Fall [Unknown]
  - Dysarthria [Unknown]

NARRATIVE: CASE EVENT DATE: 2018
